FAERS Safety Report 11514032 (Version 2)
Quarter: 2015Q3

REPORT INFORMATION
  Report Type: Spontaneous
  Country: US (occurrence: US)
  Receive Date: 20150916
  Receipt Date: 20150921
  Transmission Date: 20151125
  Serious: Yes (Other)
  Sender: FDA-Public Use
  Company Number: US-PFIZER INC-2015308150

PATIENT
  Age: 29 Year
  Sex: Male
  Weight: 88 kg

DRUGS (1)
  1. VIAGRA [Suspect]
     Active Substance: SILDENAFIL CITRATE
     Indication: ERECTILE DYSFUNCTION
     Dosage: 1 DF, AS NEEDED (ONE PILL BY MOUTH WHEN NEEDED)
     Route: 048
     Dates: start: 201509

REACTIONS (2)
  - Erection increased [Not Recovered/Not Resolved]
  - Spontaneous ejaculation [Unknown]

NARRATIVE: CASE EVENT DATE: 20150913
